FAERS Safety Report 15482288 (Version 1)
Quarter: 2018Q4

REPORT INFORMATION
  Report Type: Spontaneous
  Country: US (occurrence: US)
  Receive Date: 20181003
  Receipt Date: 20181003
  Transmission Date: 20190205
  Serious: No
  Sender: FDA-Public Use
  Company Number: None

PATIENT
  Age: 73 Year
  Sex: Male
  Weight: 92.08 kg

DRUGS (2)
  1. ZYTIGA [Suspect]
     Active Substance: ABIRATERONE ACETATE
     Indication: PROSTATE CANCER
     Dosage: TAKE 4 TABLETS BY MOUTH EVERY DAY AS DIRECTED *DO NOT EAT 2HRS BEFORE AND 1 HR AFTER*
     Route: 048
     Dates: start: 201803
  2. ZYTIGA [Suspect]
     Active Substance: ABIRATERONE ACETATE
     Indication: MANTLE CELL LYMPHOMA
     Dosage: TAKE 4 TABLETS BY MOUTH EVERY DAY AS DIRECTED *DO NOT EAT 2HRS BEFORE AND 1 HR AFTER*
     Route: 048
     Dates: start: 201803

REACTIONS (1)
  - Transient ischaemic attack [None]
